FAERS Safety Report 24188886 (Version 1)
Quarter: 2024Q3

REPORT INFORMATION
  Report Type: Spontaneous
  Country: US (occurrence: None)
  Receive Date: 20240806
  Receipt Date: 20240806
  Transmission Date: 20241017
  Serious: Yes (unspecified)
  Sender: Public
  Company Number: None

PATIENT
  Age: 77 Year
  Weight: 118.84 kg

DRUGS (3)
  1. HUMALOG [Suspect]
     Active Substance: INSULIN LISPRO
  2. METFORMIN [Suspect]
     Active Substance: METFORMIN HYDROCHLORIDE
  3. HUMULIN N [Concomitant]

REACTIONS (8)
  - Nausea [None]
  - Malaise [None]
  - Therapy change [None]
  - Blood glucose increased [None]
  - Refusal of treatment by patient [None]
  - Therapy interrupted [None]
  - Product dispensing error [None]
  - Wrong product administered [None]

NARRATIVE: CASE EVENT DATE: 20240805
